FAERS Safety Report 17674769 (Version 1)
Quarter: 2020Q2

REPORT INFORMATION
  Report Type: Spontaneous
  Country: US (occurrence: US)
  Receive Date: 20200416
  Receipt Date: 20200416
  Transmission Date: 20200714
  Serious: Yes (Death, Hospitalization, Other)
  Sender: FDA-Public Use
  Company Number: US-EMCURE PHARMACEUTICALS LTD-2020-EPL-000401

PATIENT
  Age: 73 Year
  Sex: Female

DRUGS (4)
  1. ZOLEDRONIC ACID [Suspect]
     Active Substance: ZOLEDRONIC ACID
     Indication: PLASMA CELL MYELOMA
     Dosage: TEN DAYS PRIOR TO ADMISSION- ONE DOSE
  2. VELCADE [Suspect]
     Active Substance: BORTEZOMIB
     Indication: PLASMA CELL MYELOMA
     Dosage: THREE DOSES
  3. REVLIMID [Suspect]
     Active Substance: LENALIDOMIDE
     Indication: PLASMA CELL MYELOMA
     Dosage: SEVEN DOSES OF DAILY
  4. DEXAMETHASONE. [Suspect]
     Active Substance: DEXAMETHASONE
     Indication: PLASMA CELL MYELOMA
     Dosage: WEEKLY

REACTIONS (10)
  - Cardiac arrest [Fatal]
  - Respiratory distress [Unknown]
  - Pulmonary oedema [Unknown]
  - Electrocardiogram QT prolonged [Unknown]
  - Febrile neutropenia [Unknown]
  - Pancytopenia [Unknown]
  - Hypocalcaemia [Recovering/Resolving]
  - Acute kidney injury [Unknown]
  - Generalised tonic-clonic seizure [Unknown]
  - Cardiomegaly [Unknown]
